FAERS Safety Report 7121782-4 (Version None)
Quarter: 2010Q4

REPORT INFORMATION
  Report Type: 
  Country: None (occurrence: None)
  Receive Date: 20101124
  Receipt Date: 20101027
  Transmission Date: 20110411
  Serious: Yes (Other)
  Sender: FDA-Public Use
  Company Number: US-AMGEN-USASP2010002504

PATIENT

DRUGS (3)
  1. PROCRIT [Suspect]
     Indication: ANAEMIA
     Dosage: 20000 UNIT, QWK
     Dates: start: 20060101
  2. PROLOL                             /00030002/ [Concomitant]
     Dosage: UNK
     Dates: start: 20050101
  3. RAPAMUNE [Concomitant]
     Dosage: UNK
     Dates: start: 20050101

REACTIONS (3)
  - FATIGUE [None]
  - HAEMOGLOBIN DECREASED [None]
  - SOMNOLENCE [None]
